FAERS Safety Report 9039448 (Version 1)
Quarter: 2013Q1

REPORT INFORMATION
  Report Type: Spontaneous
  Country: US (occurrence: None)
  Receive Date: 20130123
  Receipt Date: 20130123
  Transmission Date: 20140127
  Serious: Yes (Other)
  Sender: FDA-Public Use
  Company Number: None

PATIENT
  Age: 43 Year
  Sex: Male
  Weight: 67.59 kg

DRUGS (2)
  1. OLANZAPINE [Suspect]
     Dosage: QHS PO
     Route: 048
     Dates: start: 200801, end: 20130109
  2. OLANZAPINE [Suspect]
     Route: 048
     Dates: start: 201301, end: 20130105

REACTIONS (3)
  - Drug ineffective [None]
  - Anxiety [None]
  - Hallucination, auditory [None]
